FAERS Safety Report 10444911 (Version 2)
Quarter: 2014Q4

REPORT INFORMATION
  Report Type: Spontaneous
  Country: US (occurrence: US)
  Receive Date: 20140910
  Receipt Date: 20141009
  Transmission Date: 20150528
  Serious: No
  Sender: FDA-Public Use
  Company Number: US-AMGEN INC.-USASP2014068235

PATIENT
  Age: 71 Year
  Sex: Female

DRUGS (2)
  1. ENBREL [Suspect]
     Active Substance: ETANERCEPT
     Indication: RHEUMATOID ARTHRITIS
     Dosage: 50 MG, QWK
     Route: 065
     Dates: start: 20140704
  2. ENBREL [Suspect]
     Active Substance: ETANERCEPT
     Dosage: UNK
     Route: 065

REACTIONS (5)
  - Pruritus [Not Recovered/Not Resolved]
  - Dry skin [Not Recovered/Not Resolved]
  - Condition aggravated [Not Recovered/Not Resolved]
  - Liver disorder [Unknown]
  - Skin discolouration [Not Recovered/Not Resolved]

NARRATIVE: CASE EVENT DATE: 2014
